FAERS Safety Report 11805234 (Version 2)
Quarter: 2015Q4

REPORT INFORMATION
  Report Type: Spontaneous
  Country: FR (occurrence: FR)
  Receive Date: 20151206
  Receipt Date: 20151218
  Transmission Date: 20160305
  Serious: Yes (Other)
  Sender: FDA-Public Use
  Company Number: FR-MYLANLABS-2015M1042707

PATIENT

DRUGS (1)
  1. VALSARTAN MYLAN 160MG FILM-COATED TABLETS [Suspect]
     Active Substance: VALSARTAN
     Indication: PAIN
     Dosage: 1 DF, QD
     Dates: start: 2014, end: 2015

REACTIONS (9)
  - Swelling face [Unknown]
  - Pain in extremity [Unknown]
  - Vomiting [Unknown]
  - Cold sweat [Unknown]
  - Abdominal pain [Unknown]
  - Swelling [Unknown]
  - Insomnia [Unknown]
  - Weight decreased [Unknown]
  - Eyelid irritation [Unknown]
